FAERS Safety Report 6456313-5 (Version None)
Quarter: 2009Q4

REPORT INFORMATION
  Report Type: 
  Country: None (occurrence: None)
  Receive Date: 20091125
  Receipt Date: 20091117
  Transmission Date: 20100525
  Serious: Yes (Hospitalization)
  Sender: FDA-Public Use
  Company Number: FR-JNJFOC-20091105229

PATIENT
  Sex: Female

DRUGS (4)
  1. INFLIXIMAB [Suspect]
     Indication: CROHN'S DISEASE
     Dosage: 2 DOSES
     Route: 042
  2. ADALIMUMAB [Suspect]
     Indication: CROHN'S DISEASE
  3. AZATHIOPRINE [Concomitant]
  4. PREDNISONE [Concomitant]

REACTIONS (2)
  - CROHN'S DISEASE [None]
  - PULMONARY TUBERCULOSIS [None]
